FAERS Safety Report 8106554-6 (Version None)
Quarter: 2012Q1

REPORT INFORMATION
  Report Type: 
  Country: None (occurrence: None)
  Receive Date: 20120202
  Receipt Date: 20120124
  Transmission Date: 20120608
  Serious: Yes (Hospitalization)
  Sender: FDA-Public Use
  Company Number: US-BAYER-201016079NA

PATIENT
  Age: 25 Year
  Sex: Female
  Weight: 58.95 kg

DRUGS (7)
  1. YAZ [Suspect]
     Indication: ACNE
  2. YASMIN [Suspect]
     Indication: ACNE
  3. YASMIN [Suspect]
     Indication: CONTRACEPTION
     Dosage: UNK
     Route: 048
  4. AVELOX [Concomitant]
     Indication: INFLUENZA
     Dosage: UNK
     Dates: start: 20060201
  5. TAMIFLU [Concomitant]
     Indication: INFLUENZA
     Dosage: UNK
     Dates: start: 20060201
  6. DECONGESTANTS AND ANTIALLERGICS [Concomitant]
     Indication: INFLUENZA
     Dosage: UNK
     Dates: start: 20060201
  7. YAZ [Suspect]
     Indication: CONTRACEPTION
     Dosage: 1 UNK, UNK
     Route: 048

REACTIONS (3)
  - INJURY [None]
  - ISCHAEMIC CEREBRAL INFARCTION [None]
  - CEREBROVASCULAR ACCIDENT [None]
